FAERS Safety Report 16930283 (Version 1)
Quarter: 2019Q4

REPORT INFORMATION
  Report Type: Spontaneous
  Country: PE (occurrence: PE)
  Receive Date: 20191017
  Receipt Date: 20191017
  Transmission Date: 20200122
  Serious: Yes (Death, Hospitalization)
  Sender: FDA-Public Use
  Company Number: PE-009507513-1910PER008881

PATIENT
  Age: 35 Year
  Sex: Male
  Weight: 50 kg

DRUGS (13)
  1. DELAMANID [Suspect]
     Active Substance: DELAMANID
     Indication: PRODUCT USED FOR UNKNOWN INDICATION
     Dosage: 200 MILLIGRAM,ONCE A DAY
     Route: 048
     Dates: end: 20190822
  2. AMOXICILLIN (+) CLAVULANATE POTASSIUM [Suspect]
     Active Substance: AMOXICILLIN\CLAVULANATE POTASSIUM
     Indication: PRODUCT USED FOR UNKNOWN INDICATION
     Dosage: 200 MILLIGRAM, ONCE A DAY(ALSO REPORTED AS 2000MG ONCE A DAY)
     Route: 065
     Dates: end: 20190822
  3. AMIKACIN. [Suspect]
     Active Substance: AMIKACIN
     Indication: PRODUCT USED FOR UNKNOWN INDICATION
     Dosage: 750 MILLIGRAM, ONCE A DAY
     Route: 065
     Dates: end: 20190822
  4. IMIPENEM AND CILASTATIN [Suspect]
     Active Substance: CILASTATIN SODIUM\IMIPENEM
     Indication: PRODUCT USED FOR UNKNOWN INDICATION
     Dosage: 2000MG, QD(ONCE A DAY)
     Route: 065
     Dates: start: 2019, end: 20190822
  5. LINEZOLID. [Suspect]
     Active Substance: LINEZOLID
     Dosage: 600 MILLIGRAM, ONCE A DAY
     Route: 065
     Dates: start: 20180222, end: 20190709
  6. THIORIDAZINE [Suspect]
     Active Substance: THIORIDAZINE
     Indication: PRODUCT USED FOR UNKNOWN INDICATION
     Dosage: 150 MILLIGRAM, ONCE A DAY
     Route: 065
     Dates: end: 20190822
  7. CYCLOSERINE. [Suspect]
     Active Substance: CYCLOSERINE
     Indication: PRODUCT USED FOR UNKNOWN INDICATION
     Dosage: 750 MILLIGRAM, ONCE A DAY
     Route: 065
     Dates: end: 20190822
  8. OMEPRAZOLE. [Concomitant]
     Active Substance: OMEPRAZOLE
     Indication: PRODUCT USED FOR UNKNOWN INDICATION
     Dosage: UNK
     Dates: start: 20190610
  9. ETHIONAMIDE [Suspect]
     Active Substance: ETHIONAMIDE
     Indication: PRODUCT USED FOR UNKNOWN INDICATION
     Dosage: 750 MILLIGRAM, ONCE A DAY
     Route: 065
     Dates: end: 20190822
  10. LINEZOLID. [Suspect]
     Active Substance: LINEZOLID
     Indication: PRODUCT USED FOR UNKNOWN INDICATION
     Dosage: 600 MILLIGRAM, ONCE A DAY
     Route: 065
     Dates: end: 20190822
  11. ETHIONAMIDE [Suspect]
     Active Substance: ETHIONAMIDE
     Dosage: 500MG, ONCE A DAY
     Route: 065
     Dates: start: 20180222, end: 20190709
  12. TRANSAMIN [Concomitant]
     Active Substance: TRANEXAMIC ACID
     Indication: PRODUCT USED FOR UNKNOWN INDICATION
     Dosage: UNK
     Dates: start: 20190610
  13. DEXTROMETHORPHAN [Concomitant]
     Active Substance: DEXTROMETHORPHAN
     Indication: PRODUCT USED FOR UNKNOWN INDICATION
     Dosage: UNK
     Dates: start: 20190610

REACTIONS (1)
  - Haemoptysis [Fatal]

NARRATIVE: CASE EVENT DATE: 20190728
